FAERS Safety Report 7538188-6 (Version None)
Quarter: 2011Q2

REPORT INFORMATION
  Report Type: 
  Country: None (occurrence: None)
  Receive Date: 20110609
  Receipt Date: 20110603
  Transmission Date: 20111010
  Serious: Yes (Hospitalization)
  Sender: FDA-Public Use
  Company Number: KR-PFIZER INC-2011084028

PATIENT
  Age: 49 Year
  Sex: Female

DRUGS (26)
  1. FAMOTIDINE [Concomitant]
     Dosage: UNK
     Dates: start: 20110415, end: 20110425
  2. SODIUM CHLORIDE [Concomitant]
     Dosage: UNK
     Dates: start: 20110412, end: 20110415
  3. SODIUM CHLORIDE [Concomitant]
     Dosage: UNK
     Dates: start: 20110416, end: 20110416
  4. FAMOTIDINE [Concomitant]
     Dosage: UNK
     Dates: start: 20110408, end: 20110408
  5. FAMOTIDINE [Concomitant]
     Dosage: UNK
     Dates: start: 20110414, end: 20110414
  6. SODIUM CHLORIDE [Concomitant]
     Dosage: UNK
     Dates: start: 20110417, end: 20110417
  7. MAGNESIUM OXIDE [Concomitant]
     Dosage: UNK
     Dates: start: 20110413, end: 20110413
  8. RANITIDINE BISMUTH CITRATE [Concomitant]
  9. FAMOTIDINE [Concomitant]
     Dosage: UNK
     Dates: start: 20110409, end: 20110409
  10. FAMOTIDINE [Concomitant]
     Dosage: UNK
     Dates: start: 20110414, end: 20110414
  11. FAMOTIDINE [Concomitant]
     Dosage: UNK
  12. FUSIDATE SODIUM [Concomitant]
     Dosage: UNK
     Dates: start: 20110418, end: 20110418
  13. SODIUM CHLORIDE [Concomitant]
     Dosage: UNK
     Dates: start: 20110408, end: 20110408
  14. METHYLPREDNISOLONE ACEPONATE [Concomitant]
     Dosage: UNK
     Dates: start: 20110411, end: 20110411
  15. FUSIDATE SODIUM [Concomitant]
     Dosage: UNK
     Dates: start: 20110411, end: 20110411
  16. BISACODYL [Concomitant]
     Dosage: UNK
     Dates: start: 20110413, end: 20110415
  17. MAGNESIUM OXIDE [Concomitant]
     Dosage: UNK
     Dates: start: 20110412, end: 20110412
  18. MAGNESIUM OXIDE [Concomitant]
     Dosage: UNK
     Dates: start: 20110418, end: 20110418
  19. MAGNESIUM OXIDE [Concomitant]
     Dosage: UNK
     Dates: start: 20110415, end: 20110415
  20. SUNITINIB MALATE [Suspect]
     Indication: RENAL CELL CARCINOMA
     Dosage: 50 MG, 1X/DAY
     Route: 048
     Dates: start: 20101228
  21. CILAZAPRIL [Concomitant]
     Dosage: UNK
     Dates: start: 20110413, end: 20110414
  22. METHYLPREDNISOLONE ACEPONATE [Concomitant]
     Dosage: UNK
     Dates: start: 20110412, end: 20110417
  23. FAMOTIDINE [Concomitant]
     Dosage: UNK
     Dates: start: 20110410, end: 20110413
  24. MAGNESIUM OXIDE [Concomitant]
     Dosage: UNK
     Dates: start: 20110417, end: 20110417
  25. METHYLPREDNISOLONE ACEPONATE [Concomitant]
     Dosage: UNK
     Dates: start: 20110418, end: 20110418
  26. NAPROXEN SODIUM [Concomitant]
     Dosage: UNK
     Dates: start: 20110414

REACTIONS (1)
  - SUBARACHNOID HAEMORRHAGE [None]
